FAERS Safety Report 16865514 (Version 4)
Quarter: 2020Q1

REPORT INFORMATION
  Report Type: Report from Study
  Country: None (occurrence: US)
  Receive Date: 20190930
  Receipt Date: 20200116
  Transmission Date: 20200409
  Serious: Yes (Other)
  Sender: FDA-Public Use
  Company Number: US-ABBVIE-19K-163-2883221-00

PATIENT
  Sex: Female

DRUGS (4)
  1. HUMIRA [Suspect]
     Active Substance: ADALIMUMAB
     Indication: PSORIATIC ARTHROPATHY
     Route: 058
     Dates: start: 20190703, end: 2019
  2. HUMIRA [Suspect]
     Active Substance: ADALIMUMAB
     Route: 058
     Dates: start: 20190911
  3. HUMIRA [Suspect]
     Active Substance: ADALIMUMAB
     Route: 058
     Dates: start: 2019, end: 2019
  4. METHOTREXATE. [Concomitant]
     Active Substance: METHOTREXATE
     Indication: PSORIASIS

REACTIONS (14)
  - Arthralgia [Not Recovered/Not Resolved]
  - Psoriasis [Unknown]
  - Pain [Recovering/Resolving]
  - Discomfort [Not Recovered/Not Resolved]
  - Psoriatic arthropathy [Unknown]
  - Foot fracture [Unknown]
  - Foot fracture [Recovering/Resolving]
  - Headache [Unknown]
  - Accident [Unknown]
  - Neck surgery [Unknown]
  - Spinal operation [Unknown]
  - Joint swelling [Recovering/Resolving]
  - Joint swelling [Recovered/Resolved]
  - Joint stiffness [Recovering/Resolving]

NARRATIVE: CASE EVENT DATE: 2019
